FAERS Safety Report 6405799-0 (Version None)
Quarter: 2009Q4

REPORT INFORMATION
  Report Type: 
  Country: None (occurrence: None)
  Receive Date: 20091016
  Receipt Date: 20091016
  Transmission Date: 20100525
  Serious: Yes (Other)
  Sender: FDA-Public Use
  Company Number: None

PATIENT
  Age: 43 Year
  Sex: Female
  Weight: 65 kg

DRUGS (2)
  1. MIRENA [Suspect]
     Indication: MENORRHAGIA
     Dosage: INTRAUTERINE
     Route: 015
     Dates: start: 20080103, end: 20090219
  2. FERINJECT [Concomitant]

REACTIONS (8)
  - ACNE [None]
  - ANAEMIA [None]
  - BREAST TENDERNESS [None]
  - MENORRHAGIA [None]
  - METRORRHAGIA [None]
  - MOOD SWINGS [None]
  - OVARIAN CYST [None]
  - VISUAL IMPAIRMENT [None]
